FAERS Safety Report 4614740-2 (Version None)
Quarter: 2005Q2

REPORT INFORMATION
  Report Type: 
  Country: None (occurrence: None)
  Receive Date: 20050310
  Receipt Date: 20041116
  Transmission Date: 20051028
  Serious: Yes (Other)
  Sender: FDA-Public Use
  Company Number: A03200403872

PATIENT

DRUGS (1)
  1. ELOXATIN - OXAPLATIN - SOLUTION [Suspect]
     Indication: NEOPLASM MALIGNANT

REACTIONS (2)
  - INJECTION SITE EXTRAVASATION [None]
  - PLEURITIC PAIN [None]
